FAERS Safety Report 24240258 (Version 1)
Quarter: 2024Q3

REPORT INFORMATION
  Report Type: Spontaneous
  Country: US (occurrence: US)
  Receive Date: 20240822
  Receipt Date: 20240822
  Transmission Date: 20241016
  Serious: Yes (Other)
  Sender: GREER
  Company Number: US-GREER Laboratories, Inc.-2160764

PATIENT
  Age: 51 Year
  Sex: Female
  Weight: 109.09 kg

DRUGS (8)
  1. STANDARDIZED MITE MIX [Suspect]
     Active Substance: DERMATOPHAGOIDES FARINAE\DERMATOPHAGOIDES PTERONYSSINUS
     Indication: Seasonal allergy
     Route: 058
  2. STANDARDIZED CAT HAIR [Suspect]
     Active Substance: FELIS CATUS HAIR
     Route: 058
  3. FLONASE [Concomitant]
     Active Substance: FLUTICASONE PROPIONATE
  4. CETIRIZINE [Concomitant]
     Active Substance: CETIRIZINE HYDROCHLORIDE
  5. MOLD MIX 3 [Suspect]
     Active Substance: ALTERNARIA ALTERNATA\ASPERGILLUS NIGER VAR. NIGER\CLADOSPORIUM SPHAEROSPERMUM\PENICILLIUM CHRYSOGENU
     Route: 058
  6. DOG EPITHELIA [Suspect]
     Active Substance: CANIS LUPUS FAMILIARIS SKIN
     Route: 058
  7. SHORT AND GIANT RAGWEED POLLEN MIX [Suspect]
     Active Substance: AMBROSIA ARTEMISIIFOLIA POLLEN\AMBROSIA TRIFIDA POLLEN
     Route: 058
  8. ALLERGENIC EXTRACT- WEEDS [Suspect]
     Active Substance: ALLERGENIC EXTRACT- WEEDS
     Route: 058

REACTIONS (2)
  - Oropharyngeal discomfort [Recovered/Resolved]
  - Eye swelling [Recovered/Resolved]

NARRATIVE: CASE EVENT DATE: 20240724
